FAERS Safety Report 25853671 (Version 1)
Quarter: 2025Q3

REPORT INFORMATION
  Report Type: Spontaneous
  Country: CN (occurrence: CN)
  Receive Date: 20250926
  Receipt Date: 20250926
  Transmission Date: 20251021
  Serious: Yes (Other)
  Sender: GILEAD
  Company Number: CN-GILEAD-2025-0730211

PATIENT
  Age: 62 Year
  Sex: Female
  Weight: 62 kg

DRUGS (1)
  1. TRODELVY [Suspect]
     Active Substance: SACITUZUMAB GOVITECAN-HZIY
     Indication: Breast cancer
     Route: 041
     Dates: start: 20250901, end: 20250901

REACTIONS (4)
  - Hypokalaemia [Recovering/Resolving]
  - Electrolyte imbalance [Recovering/Resolving]
  - Abdominal pain [Recovering/Resolving]
  - White blood cell count decreased [Recovering/Resolving]

NARRATIVE: CASE EVENT DATE: 20250909
